FAERS Safety Report 9835390 (Version 1)
Quarter: 2014Q1

REPORT INFORMATION
  Report Type: Spontaneous
  Country: US (occurrence: US)
  Receive Date: 20140122
  Receipt Date: 20140122
  Transmission Date: 20141002
  Serious: No
  Sender: FDA-Public Use
  Company Number: US-BRISTOL-MYERS SQUIBB COMPANY-19545037

PATIENT
  Age: 81 Year
  Sex: Female
  Weight: 77.1 kg

DRUGS (1)
  1. ELIQUIS [Suspect]
     Indication: SURGERY
     Dates: start: 201306

REACTIONS (7)
  - Nausea [Unknown]
  - Disturbance in attention [Unknown]
  - Feeling abnormal [Unknown]
  - Gait disturbance [Unknown]
  - Visual impairment [Unknown]
  - Asthenia [Unknown]
  - Weight decreased [Unknown]
